FAERS Safety Report 23473582 (Version 1)
Quarter: 2024Q1

REPORT INFORMATION
  Report Type: Spontaneous
  Country: FR (occurrence: FR)
  Receive Date: 20240203
  Receipt Date: 20240203
  Transmission Date: 20240410
  Serious: Yes (Other)
  Sender: FDA-Public Use
  Company Number: FR-Korea IPSEN-2024-01401

PATIENT
  Age: 52 Year
  Sex: Female

DRUGS (3)
  1. DYSPORT [Suspect]
     Active Substance: ABOBOTULINUMTOXINA
     Indication: Muscle spasticity
     Dosage: IN UPPER LIMB: PECTORALIS MAJOR = 200IU, BRACHIORADIALIS MUSCLE = 150IU, FLEXOR CARPI ULNARIS MUSCLE
     Route: 051
     Dates: start: 20230510, end: 20230510
  2. DYSPORT [Suspect]
     Active Substance: ABOBOTULINUMTOXINA
     Dosage: IN UPPER LIMB: PECTORALIS MAJOR = 250IU, BRACHIORADIALIS MUSCLE = 200IU, FLEXOR CARPI ULNARIS MUSCLE
     Route: 051
     Dates: start: 20230922, end: 20230922
  3. DYSPORT [Suspect]
     Active Substance: ABOBOTULINUMTOXINA
     Dosage: IN UPPER LIMB: BRACHIALIS ANTICUS=150 IU, BRACHIORADIALIS MUSCLE = 200IU, FLEXOR CARPI RADIALIS MUS
     Route: 051
     Dates: start: 20231220, end: 20231220

REACTIONS (7)
  - Aspiration [Recovered/Resolved]
  - Aspiration [Recovering/Resolving]
  - Gait disturbance [Recovering/Resolving]
  - Muscular weakness [Recovered/Resolved]
  - Muscular weakness [Recovering/Resolving]
  - Impaired driving ability [Recovering/Resolving]
  - Muscular weakness [Recovering/Resolving]

NARRATIVE: CASE EVENT DATE: 20230601
